FAERS Safety Report 10247123 (Version 2)
Quarter: 2014Q3

REPORT INFORMATION
  Report Type: Spontaneous
  Country: US (occurrence: None)
  Receive Date: 20140617
  Receipt Date: 20140804
  Transmission Date: 20150326
  Serious: Yes (Hospitalization, Other)
  Sender: FDA-Public Use
  Company Number: ADR-2014-01023

PATIENT
  Sex: Female

DRUGS (2)
  1. BACLOFEN INTRATHECAL [Suspect]
     Active Substance: BACLOFEN
     Indication: MUSCLE SPASTICITY
     Dosage: 479.9 MCG/DAY
  2. LIORESAL [Suspect]
     Active Substance: BACLOFEN

REACTIONS (11)
  - Meningitis viral [None]
  - Device connection issue [None]
  - Muscle spasticity [None]
  - Muscle contracture [None]
  - Procedural complication [None]
  - Musculoskeletal disorder [None]
  - Wound dehiscence [None]
  - Abdominal pain [None]
  - Hyperaesthesia [None]
  - Spinal cord disorder [None]
  - Cyst [None]
